FAERS Safety Report 10202297 (Version 1)
Quarter: 2014Q2

REPORT INFORMATION
  Report Type: Spontaneous
  Country: CH (occurrence: US)
  Receive Date: 20140528
  Receipt Date: 20140528
  Transmission Date: 20141212
  Serious: Yes (Other)
  Sender: FDA-Public Use
  Company Number: CH-WATSON-2014-11411

PATIENT
  Sex: Female

DRUGS (1)
  1. TRELSTAR (WATSON LABORATORIES) [Suspect]
     Indication: PROSTATE CANCER
     Dosage: 3.75 MG, ONCE EVERY 4 WEEKS
     Route: 030

REACTIONS (4)
  - Cutaneous vasculitis [Unknown]
  - Hot flush [Unknown]
  - Headache [Unknown]
  - Insomnia [Unknown]
